APPROVED DRUG PRODUCT: ALUPENT
Active Ingredient: METAPROTERENOL SULFATE
Strength: 0.65MG/INH
Dosage Form/Route: AEROSOL, METERED;INHALATION
Application: N016402 | Product #001
Applicant: BOEHRINGER INGELHEIM PHARMACEUTICALS INC
Approved: Approved Prior to Jan 1, 1982 | RLD: No | RS: No | Type: DISCN